FAERS Safety Report 8423507-9 (Version None)
Quarter: 2012Q2

REPORT INFORMATION
  Report Type: 
  Country: None (occurrence: None)
  Receive Date: 20120608
  Receipt Date: 20120605
  Transmission Date: 20120825
  Serious: Yes (Hospitalization)
  Sender: FDA-Public Use
  Company Number: FR-ROCHE-1075240

PATIENT
  Age: 46 Year
  Sex: Female

DRUGS (9)
  1. ACETAMINOPHEN [Concomitant]
  2. ACTEMRA [Suspect]
     Indication: RHEUMATOID ARTHRITIS
     Route: 042
     Dates: start: 20110901
  3. ACTEMRA [Suspect]
     Indication: MIXED CONNECTIVE TISSUE DISEASE
  4. PREDNISONE TAB [Concomitant]
  5. NEXIUM [Concomitant]
     Dosage: INEXIUM 20
  6. LEVOTHYROXINE SODIUM [Concomitant]
     Dosage: LEVOTHYROX 160
  7. CALCIT [Concomitant]
     Dosage: CALCIT D3
  8. ACTEMRA [Suspect]
     Indication: SYSTEMIC LUPUS ERYTHEMATOSUS
  9. PLAQUENIL [Concomitant]

REACTIONS (3)
  - PYREXIA [None]
  - ODYNOPHAGIA [None]
  - SKIN LESION [None]
